FAERS Safety Report 25122862 (Version 2)
Quarter: 2025Q2

REPORT INFORMATION
  Report Type: Spontaneous
  Country: HR (occurrence: HR)
  Receive Date: 20250326
  Receipt Date: 20250403
  Transmission Date: 20250717
  Serious: Yes (Hospitalization, Other)
  Sender: MYLAN
  Company Number: HR-BoehringerIngelheim-2025-BI-014340

PATIENT
  Age: 75 Year
  Sex: Female
  Weight: 66 kg

DRUGS (5)
  1. DABIGATRAN [Suspect]
     Active Substance: DABIGATRAN
     Indication: Atrial fibrillation
     Dosage: 150 MILLIGRAM, BID
  2. ALPRAZOLAM [Concomitant]
     Active Substance: ALPRAZOLAM
     Dosage: 0.25 MILLIGRAM, QD
  3. BISOPROLOL [Concomitant]
     Active Substance: BISOPROLOL
     Dosage: 2.5 MILLIGRAM, QD
  4. PAROXETINE [Concomitant]
     Active Substance: PAROXETINE
     Dosage: 20 MILLIGRAM, QD
  5. AMLODIPINE\RAMIPRIL [Concomitant]
     Active Substance: AMLODIPINE\RAMIPRIL
     Dosage: 10 MILLIGRAM, QD

REACTIONS (9)
  - Cardiac failure [Unknown]
  - Skin infection [Unknown]
  - Anticoagulant-related nephropathy [Unknown]
  - Renal impairment [Recovering/Resolving]
  - Renal tubular injury [Recovering/Resolving]
  - Haematuria [Unknown]
  - Renal haemorrhage [Recovering/Resolving]
  - Nephropathy [Recovering/Resolving]
  - Red blood cell abnormality [Recovering/Resolving]

NARRATIVE: CASE EVENT DATE: 20210701
